FAERS Safety Report 22275871 (Version 1)
Quarter: 2023Q2

REPORT INFORMATION
  Report Type: Spontaneous
  Country: US (occurrence: US)
  Receive Date: 20230502
  Receipt Date: 20230502
  Transmission Date: 20230722
  Serious: No
  Sender: FDA-Public Use
  Company Number: US-TEVA-2023-US-2878813

PATIENT
  Age: 44 Year
  Sex: Female
  Weight: 111.13 kg

DRUGS (2)
  1. POTASSIUM CHLORIDE [Suspect]
     Active Substance: POTASSIUM CHLORIDE
     Indication: Hemiplegic migraine
     Dosage: 20 MEQ
  2. POTASSIUM CHLORIDE [Suspect]
     Active Substance: POTASSIUM CHLORIDE
     Dosage: 10 MEQ

REACTIONS (1)
  - Therapeutic product effect incomplete [Unknown]
